FAERS Safety Report 13946703 (Version 2)
Quarter: 2017Q3

REPORT INFORMATION
  Report Type: Not Available
  Country: US (occurrence: US)
  Receive Date: 20170907
  Receipt Date: 20170929
  Transmission Date: 20171128
  Serious: Yes (Death)
  Sender: FDA-Public Use
  Company Number: US-ANIPHARMA-2017-US-010443

PATIENT
  Age: 34 Year
  Sex: Female
  Weight: 73 kg

DRUGS (14)
  1. CLARITIN [Concomitant]
     Active Substance: LORATADINE
     Route: 065
  2. ZOVIRAX [Concomitant]
     Active Substance: ACYCLOVIR
     Dosage: 400 MG
     Route: 065
     Dates: start: 20170717
  3. COMPAZINE [Concomitant]
     Active Substance: PROCHLORPERAZINE MALEATE
     Dosage: 5 MG
     Route: 065
  4. VANCOMYCIN HYDROCHLORIDE (NON-SPECIFIC) [Suspect]
     Active Substance: VANCOMYCIN HYDROCHLORIDE
     Dosage: 125 MG EVERY 6 HOURS
     Route: 048
     Dates: start: 20170717, end: 20170902
  5. CORTAID [Concomitant]
     Active Substance: HYDROCORTISONE
     Route: 065
  6. MELATONIN [Concomitant]
     Active Substance: MELATONIN
     Route: 065
  7. LEVAQUIN [Concomitant]
     Active Substance: LEVOFLOXACIN
     Route: 065
  8. ASP2215 [Suspect]
     Active Substance: GILTERITINIB
     Dosage: 120 MG ONCE DAILY
     Route: 048
     Dates: start: 20170621, end: 20170719
  9. TYLENOL [Concomitant]
     Active Substance: ACETAMINOPHEN
     Route: 065
  10. COLACE [Concomitant]
     Active Substance: DOCUSATE SODIUM
     Route: 065
  11. LESS INA [Concomitant]
     Route: 065
  12. ZOFRAN [Concomitant]
     Active Substance: ONDANSETRON HYDROCHLORIDE
     Route: 065
  13. SIMETHICONE (DIMETHICONE) [Concomitant]
     Active Substance: DIMETHICONE
     Route: 065
  14. DIPHENHYDRAMINE HCL [Concomitant]
     Active Substance: DIPHENHYDRAMINE HYDROCHLORIDE
     Route: 065

REACTIONS (4)
  - Death [Fatal]
  - Pulmonary embolism [Unknown]
  - Febrile neutropenia [Unknown]
  - Drug ineffective [Unknown]

NARRATIVE: CASE EVENT DATE: 20170717
